FAERS Safety Report 6369133-7 (Version None)
Quarter: 2009Q3

REPORT INFORMATION
  Report Type: 
  Country: None (occurrence: None)
  Receive Date: 20090922
  Receipt Date: 20081203
  Transmission Date: 20100115
  Serious: No
  Sender: FDA-Public Use
  Company Number: US-ALLERGAN-0815339US

PATIENT
  Age: 18 Year
  Sex: Female

DRUGS (4)
  1. TAZORAC [Suspect]
     Indication: ACNE
     Dosage: UNK, UNKNOWN
     Route: 061
     Dates: start: 20081001, end: 20081001
  2. AZELEX [Suspect]
     Indication: ACNE
     Dosage: UNK, QAM
  3. RETIN-A [Concomitant]
     Indication: DRUG USE FOR UNKNOWN INDICATION
     Dosage: UNK, QPM
  4. BENZACLIN [Concomitant]
     Indication: DRUG USE FOR UNKNOWN INDICATION

REACTIONS (2)
  - RASH [None]
  - URTICARIA [None]
